FAERS Safety Report 6771649-6 (Version None)
Quarter: 2010Q2

REPORT INFORMATION
  Report Type: 
  Country: None (occurrence: None)
  Receive Date: 20100616
  Receipt Date: 20100608
  Transmission Date: 20101027
  Serious: Yes (Hospitalization)
  Sender: FDA-Public Use
  Company Number: DE-AMGEN-KDC416823

PATIENT
  Sex: Male
  Weight: 79 kg

DRUGS (1)
  1. VECTIBIX [Suspect]
     Indication: COLORECTAL CANCER
     Route: 042
     Dates: start: 20100517

REACTIONS (1)
  - VENOUS THROMBOSIS LIMB [None]
